FAERS Safety Report 11445421 (Version 2)
Quarter: 2015Q4

REPORT INFORMATION
  Report Type: Spontaneous
  Country: US (occurrence: US)
  Receive Date: 20150902
  Receipt Date: 20151231
  Transmission Date: 20160304
  Serious: No
  Sender: FDA-Public Use
  Company Number: US-009507513-1509USA000977

PATIENT
  Age: 25 Year
  Sex: Female

DRUGS (1)
  1. NUVARING [Suspect]
     Active Substance: ETHINYL ESTRADIOL\ETONOGESTREL
     Dosage: 1 RING, 3 WEEKS IN 1 WEEK OUT
     Route: 067
     Dates: start: 2013

REACTIONS (1)
  - Inappropriate schedule of drug administration [Unknown]
